FAERS Safety Report 4756362-9 (Version None)
Quarter: 2005Q3

REPORT INFORMATION
  Report Type: 
  Country: None (occurrence: None)
  Receive Date: 20050830
  Receipt Date: 20050608
  Transmission Date: 20060218
  Serious: No
  Sender: FDA-Public Use
  Company Number: US-GLAXOSMITHKLINE-A0561816A

PATIENT
  Age: 50 Year
  Sex: Female

DRUGS (4)
  1. WELLBUTRIN XL [Suspect]
     Dosage: 150MG TWICE PER DAY
     Route: 048
     Dates: start: 20050501
  2. WELLBUTRIN [Suspect]
     Dosage: 150MG TWICE PER DAY
     Route: 048
     Dates: start: 20050101
  3. LORAZEPAM [Concomitant]
     Route: 065
  4. VALIUM [Concomitant]

REACTIONS (4)
  - ANXIETY [None]
  - CHEST PAIN [None]
  - DEPRESSION [None]
  - PANIC ATTACK [None]
